FAERS Safety Report 10869394 (Version 1)
Quarter: 2015Q1

REPORT INFORMATION
  Report Type: Spontaneous
  Country: CZ (occurrence: CZ)
  Receive Date: 20150226
  Receipt Date: 20150226
  Transmission Date: 20150721
  Serious: Yes (Other)
  Sender: FDA-Public Use
  Company Number: CZ-ROCHE-1543489

PATIENT
  Age: 31 Year
  Sex: Female

DRUGS (2)
  1. ZELBORAF [Suspect]
     Active Substance: VEMURAFENIB
     Indication: METASTATIC MALIGNANT MELANOMA
     Route: 048
     Dates: start: 20141205, end: 20150223
  2. ZELBORAF [Suspect]
     Active Substance: VEMURAFENIB
     Route: 048
     Dates: start: 20150223

REACTIONS (2)
  - Skin toxicity [Not Recovered/Not Resolved]
  - Dermal cyst [Not Recovered/Not Resolved]

NARRATIVE: CASE EVENT DATE: 20141220
